FAERS Safety Report 4296430-1 (Version None)
Quarter: 2004Q1

REPORT INFORMATION
  Report Type: 
  Country: None (occurrence: None)
  Receive Date: 20040217
  Receipt Date: 20040210
  Transmission Date: 20041129
  Serious: Yes (Other)
  Sender: FDA-Public Use
  Company Number: 200411908GDDC

PATIENT
  Age: 72 Year
  Sex: Female

DRUGS (3)
  1. EUGLUCON [Suspect]
     Indication: DIABETES MELLITUS
     Route: 048
     Dates: end: 20020715
  2. WARFARIN SODIUM [Suspect]
     Indication: CEREBROVASCULAR ACCIDENT PROPHYLAXIS
     Route: 048
     Dates: start: 20020709, end: 20020719
  3. VOGLIBOSE [Concomitant]
     Dosage: DOSE: UNK

REACTIONS (5)
  - CEREBRAL ARTERY EMBOLISM [None]
  - CONGENITAL ATRIAL SEPTAL DEFECT [None]
  - DEEP VEIN THROMBOSIS [None]
  - DRUG INTERACTION [None]
  - HYPOGLYCAEMIA [None]
